FAERS Safety Report 9956263 (Version 1)
Quarter: 2014Q1

REPORT INFORMATION
  Report Type: Report from Study
  Country: US (occurrence: US)
  Receive Date: 20140304
  Receipt Date: 20140304
  Transmission Date: 20141002
  Serious: No
  Sender: FDA-Public Use
  Company Number: US-ABBVIE-13P-163-1091083-00

PATIENT
  Age: 27 Year
  Sex: Male

DRUGS (3)
  1. HUMIRA [Suspect]
     Dates: start: 20130407
  2. HYDROXYZINE HCL [Concomitant]
     Indication: PRURITUS
     Dosage: 1-2 BY MOUTH AT NIGHT
  3. HYDROXYZINE HCL [Concomitant]
     Indication: POOR QUALITY SLEEP

REACTIONS (1)
  - Urticaria [Not Recovered/Not Resolved]
